FAERS Safety Report 10748221 (Version 1)
Quarter: 2015Q1

REPORT INFORMATION
  Report Type: Spontaneous
  Country: US (occurrence: None)
  Receive Date: 20150128
  Receipt Date: 20150128
  Transmission Date: 20150721
  Serious: No
  Sender: FDA-Public Use
  Company Number: None

PATIENT
  Age: 58 Year
  Sex: Female

DRUGS (9)
  1. AMPYRA [Suspect]
     Active Substance: DALFAMPRIDINE
     Indication: MULTIPLE SCLEROSIS
     Route: 048
     Dates: start: 201008, end: 201407
  2. AMPYRA [Concomitant]
     Active Substance: DALFAMPRIDINE
  3. RITUXAN [Concomitant]
     Active Substance: RITUXIMAB
  4. TRAZODONE [Concomitant]
     Active Substance: TRAZODONE HYDROCHLORIDE
  5. CICLOPIROX. [Concomitant]
     Active Substance: CICLOPIROX
  6. MACRODIN [Concomitant]
  7. MUPIROCIN. [Concomitant]
     Active Substance: MUPIROCIN
  8. PROZAC [Concomitant]
     Active Substance: FLUOXETINE HYDROCHLORIDE
  9. PROTOPIC OINTMENT [Concomitant]

REACTIONS (1)
  - Urinary tract infection [None]

NARRATIVE: CASE EVENT DATE: 20140306
